FAERS Safety Report 9732702 (Version 1)
Quarter: 2013Q4

REPORT INFORMATION
  Report Type: Spontaneous
  Country: SG (occurrence: SG)
  Receive Date: 20131204
  Receipt Date: 20131204
  Transmission Date: 20140711
  Serious: Yes (Other)
  Sender: FDA-Public Use
  Company Number: SG-INCYTE CORPORATION-2013IN002866

PATIENT
  Sex: Male

DRUGS (4)
  1. JAKAVI [Suspect]
     Dosage: 15 MG, BID
  2. JAKAVI [Suspect]
     Dosage: 10 MG, BID
  3. JAKAVI [Suspect]
     Dosage: 20 MG, BID
  4. JAKAVI [Suspect]
     Dosage: 10 MG, BID

REACTIONS (2)
  - Bone marrow failure [Recovering/Resolving]
  - Oedema [Unknown]
